FAERS Safety Report 6497239-0 (Version None)
Quarter: 2009Q4

REPORT INFORMATION
  Report Type: 
  Country: None (occurrence: None)
  Receive Date: 20091215
  Receipt Date: 20090713
  Transmission Date: 20100525
  Serious: No
  Sender: FDA-Public Use
  Company Number: A0796668A

PATIENT
  Age: 76 Year
  Sex: Male

DRUGS (7)
  1. AVODART [Suspect]
     Indication: BENIGN PROSTATIC HYPERPLASIA
     Dosage: 1CAP PER DAY
     Route: 048
     Dates: start: 20090505, end: 20090708
  2. FLOMAX [Concomitant]
  3. LIPITOR [Concomitant]
  4. TRICOR [Concomitant]
  5. MULTI-VITAMINS [Concomitant]
  6. ASPIRIN [Concomitant]
  7. LOVAZA [Concomitant]

REACTIONS (8)
  - ANXIETY [None]
  - DYSPEPSIA [None]
  - GASTROOESOPHAGEAL REFLUX DISEASE [None]
  - GLOSSODYNIA [None]
  - NERVOUSNESS [None]
  - ORAL PAIN [None]
  - SWELLING [None]
  - VISION BLURRED [None]
